FAERS Safety Report 7147924-2 (Version None)
Quarter: 2010Q4

REPORT INFORMATION
  Report Type: 
  Country: None (occurrence: None)
  Receive Date: 20101209
  Receipt Date: 20101201
  Transmission Date: 20110411
  Serious: Yes (Other)
  Sender: FDA-Public Use
  Company Number: ZA-JNJFOC-20101104715

PATIENT
  Sex: Female

DRUGS (5)
  1. TRAMADOL HYDROCHLORIDE/ACETAMINOPHEN [Suspect]
     Indication: PAIN
     Dosage: 2 PER DAY
     Route: 065
  2. TRAMADOL HYDROCHLORIDE/ACETAMINOPHEN [Suspect]
     Indication: MIGRAINE
     Dosage: 2 PER DAY
     Route: 065
  3. CYMBALTA [Interacting]
     Indication: PAIN
     Route: 065
  4. LAMICTAL [Interacting]
     Indication: EPILEPSY
     Dosage: 2 PER DAY
     Route: 065
  5. PHENYTOIN SODIUM CAP [Interacting]
     Indication: EPILEPSY
     Route: 065

REACTIONS (3)
  - ANTICONVULSANT DRUG LEVEL DECREASED [None]
  - DRUG INTERACTION [None]
  - EPILEPSY [None]
